FAERS Safety Report 8569477-4 (Version None)
Quarter: 2012Q3

REPORT INFORMATION
  Report Type: 
  Country: None (occurrence: None)
  Receive Date: 20120803
  Receipt Date: 20120726
  Transmission Date: 20120928
  Serious: Yes (Other)
  Sender: FDA-Public Use
  Company Number: US-VERTEX PHARMACEUTICALS INC.-AE-2012-011196

PATIENT
  Sex: Female
  Weight: 52.2 kg

DRUGS (3)
  1. PEGASYS [Concomitant]
     Indication: HEPATITIS C
     Route: 058
     Dates: start: 20120507
  2. INCIVEK [Suspect]
     Indication: HEPATITIS C
     Route: 048
     Dates: start: 20120507
  3. RIBASPHERE [Concomitant]
     Indication: HEPATITIS C
     Route: 048
     Dates: start: 20120507

REACTIONS (6)
  - NAUSEA [None]
  - DEHYDRATION [None]
  - VOMITING [None]
  - FATIGUE [None]
  - HAEMOGLOBIN DECREASED [None]
  - RASH PRURITIC [None]
